FAERS Safety Report 19427028 (Version 2)
Quarter: 2025Q2

REPORT INFORMATION
  Report Type: Spontaneous
  Country: US (occurrence: US)
  Receive Date: 20210616
  Receipt Date: 20250520
  Transmission Date: 20250716
  Serious: Yes (Hospitalization)
  Sender: BAUSCH AND LOMB
  Company Number: US-MLMSERVICE-20210601-2924526-1

PATIENT
  Age: 49 Year
  Sex: Male
  Weight: 81.8 kg

DRUGS (13)
  1. DILTIAZEM [Interacting]
     Active Substance: DILTIAZEM
     Indication: Product used for unknown indication
     Route: 065
  2. FAMOTIDINE [Interacting]
     Active Substance: FAMOTIDINE
     Indication: Nausea
     Route: 042
  3. FAMOTIDINE [Interacting]
     Active Substance: FAMOTIDINE
     Indication: Vomiting
  4. ONDANSETRON [Interacting]
     Active Substance: ONDANSETRON
     Indication: Nausea
     Route: 065
  5. ONDANSETRON [Interacting]
     Active Substance: ONDANSETRON
     Indication: Vomiting
  6. DOFETILIDE [Interacting]
     Active Substance: DOFETILIDE
     Indication: Product used for unknown indication
     Route: 065
  7. FUROSEMIDE [Interacting]
     Active Substance: FUROSEMIDE
     Indication: Product used for unknown indication
     Route: 065
  8. LORAZEPAM [Concomitant]
     Active Substance: LORAZEPAM
     Indication: Alcohol withdrawal syndrome
     Route: 042
  9. IBUPROFEN [Concomitant]
     Active Substance: IBUPROFEN
     Indication: Product used for unknown indication
  10. FOLIC ACID [Concomitant]
     Active Substance: FOLIC ACID
     Indication: Product used for unknown indication
  11. DABIGATRAN [Concomitant]
     Active Substance: DABIGATRAN
     Indication: Product used for unknown indication
  12. ROSUVASTATIN [Concomitant]
     Active Substance: ROSUVASTATIN
     Indication: Product used for unknown indication
  13. SENNA [Concomitant]
     Active Substance: SENNOSIDES
     Indication: Product used for unknown indication

REACTIONS (3)
  - Drug level increased [Unknown]
  - Drug interaction [Unknown]
  - Electrocardiogram QT prolonged [Recovered/Resolved]
